FAERS Safety Report 8273355-8 (Version None)
Quarter: 2012Q2

REPORT INFORMATION
  Report Type: 
  Country: None (occurrence: None)
  Receive Date: 20120411
  Receipt Date: 20120403
  Transmission Date: 20120825
  Serious: Yes (Other)
  Sender: FDA-Public Use
  Company Number: PHHY2012BR029169

PATIENT
  Sex: Male

DRUGS (2)
  1. METOPROLOL SUCCINATE [Suspect]
     Indication: HYPERTENSION
     Dosage: 1 TABLET A DAY
     Route: 048
  2. EXFORGE [Suspect]
     Indication: HYPERTENSION
     Dosage: 1 TABLET (320/5MG) A DAY
     Route: 048

REACTIONS (5)
  - MALAISE [None]
  - GASTROINTESTINAL HYPOMOTILITY [None]
  - SPINAL CORD COMPRESSION [None]
  - BLOOD PRESSURE INCREASED [None]
  - CRANIAL NERVE INJURY [None]
